FAERS Safety Report 21794389 (Version 8)
Quarter: 2023Q2

REPORT INFORMATION
  Report Type: Report from Study
  Country: ZA (occurrence: None)
  Receive Date: 20221229
  Receipt Date: 20230614
  Transmission Date: 20230722
  Serious: Yes (Hospitalization)
  Sender: FDA-Public Use
  Company Number: ZA-Eisai Medical Research-EC-2022-130919

PATIENT
  Age: 15 Year
  Sex: Male
  Weight: 30.3 kg

DRUGS (10)
  1. LENVATINIB [Suspect]
     Active Substance: LENVATINIB
     Indication: Nasopharyngeal cancer
     Route: 048
     Dates: start: 20211123, end: 20221220
  2. ACETAMINOPHEN [Concomitant]
     Active Substance: ACETAMINOPHEN
     Dates: start: 2020
  3. TRAMADOL [Concomitant]
     Active Substance: TRAMADOL
     Dates: start: 20211129
  4. EPILIM [Concomitant]
     Active Substance: VALPROATE SODIUM
     Dates: start: 20220108
  5. TEGRETOL [Concomitant]
     Active Substance: CARBAMAZEPINE
     Dates: start: 20220108
  6. FOLIC ACID [Concomitant]
     Active Substance: FOLIC ACID
     Dates: start: 20220108
  7. PYRIDOXINE [Concomitant]
     Active Substance: PYRIDOXINE
     Dates: start: 20220108
  8. THIAMINE [Concomitant]
     Active Substance: THIAMINE
     Dates: start: 20220108
  9. LEVOTHYROXINE SODIUM [Concomitant]
     Active Substance: LEVOTHYROXINE SODIUM
     Dates: start: 20220708
  10. ZOFRAN [Concomitant]
     Active Substance: ONDANSETRON HYDROCHLORIDE
     Dates: start: 20220727

REACTIONS (1)
  - Anaemia [Recovered/Resolved]

NARRATIVE: CASE EVENT DATE: 20221221
